FAERS Safety Report 5405707-5 (Version None)
Quarter: 2007Q3

REPORT INFORMATION
  Report Type: 
  Country: None (occurrence: None)
  Receive Date: 20070801
  Receipt Date: 20070725
  Transmission Date: 20080115
  Serious: Yes (Hospitalization)
  Sender: FDA-Public Use
  Company Number: 163-21880-07070314

PATIENT
  Age: 58 Year
  Sex: Male

DRUGS (6)
  1. REVLIMID [Suspect]
     Indication: MULTIPLE MYELOMA
     Dosage: 25 MG, QD X21 DAYS Q28D, ORAL
     Route: 048
     Dates: start: 20070628
  2. WARFARIN SODIUM [Concomitant]
  3. ASPIRIN [Concomitant]
  4. LYRICA [Concomitant]
  5. MS CONTIN [Concomitant]
  6. ELAVIL [Concomitant]

REACTIONS (2)
  - FATIGUE [None]
  - MALAISE [None]
